FAERS Safety Report 6116275-7 (Version None)
Quarter: 2009Q1

REPORT INFORMATION
  Report Type: 
  Country: None (occurrence: None)
  Receive Date: 20090314
  Receipt Date: 20081205
  Transmission Date: 20090719
  Serious: No
  Sender: FDA-Public Use
  Company Number: US-ABBOTT-08P-163-0491508-00

PATIENT
  Weight: 106.24 kg

DRUGS (1)
  1. HUMIRA [Suspect]
     Indication: PSORIATIC ARTHROPATHY
     Dates: start: 20081113

REACTIONS (6)
  - COUGH [None]
  - EAR CONGESTION [None]
  - HEADACHE [None]
  - PHARYNGITIS [None]
  - RHINORRHOEA [None]
  - SINUSITIS [None]
